FAERS Safety Report 13573626 (Version 1)
Quarter: 2017Q2

REPORT INFORMATION
  Report Type: Spontaneous
  Country: US (occurrence: US)
  Receive Date: 20170523
  Receipt Date: 20170523
  Transmission Date: 20170830
  Serious: Yes (Other)
  Sender: FDA-Public Use
  Company Number: US-SMITH AND NEPHEW, INC-2017SMT00330

PATIENT
  Sex: Female
  Weight: 79.37 kg

DRUGS (12)
  1. REGRANEX [Suspect]
     Active Substance: BECAPLERMIN
     Indication: WOUND
     Dosage: UNK UNK, 1X/DAY
     Route: 061
     Dates: start: 201702, end: 201704
  2. HYDROCODONE-ACETAMINOPHEN [Concomitant]
     Active Substance: ACETAMINOPHEN\HYDROCODONE
  3. ZYRTEC [Concomitant]
     Active Substance: CETIRIZINE HYDROCHLORIDE
  4. HUMALOG [Concomitant]
     Active Substance: INSULIN LISPRO
  5. UNKNOWN BLOOD PRESSURE MEDICATION [Concomitant]
     Active Substance: UNSPECIFIED INGREDIENT
     Dosage: 0.5 TABLETS, UNK
  6. GABAPENTIN. [Concomitant]
     Active Substance: GABAPENTIN
  7. METFORMIN [Concomitant]
     Active Substance: METFORMIN HYDROCHLORIDE
  8. LEVEMIR [Concomitant]
     Active Substance: INSULIN DETEMIR
  9. FISH OIL [Concomitant]
     Active Substance: FISH OIL
  10. FUROSEMIDE. [Concomitant]
     Active Substance: FUROSEMIDE
  11. VITAMIN B12 [Concomitant]
     Active Substance: CYANOCOBALAMIN
  12. VITAMIN D3 [Concomitant]
     Active Substance: CHOLECALCIFEROL

REACTIONS (6)
  - Wound complication [Not Recovered/Not Resolved]
  - Osteomyelitis [Unknown]
  - Wound infection [Not Recovered/Not Resolved]
  - Tenderness [Not Recovered/Not Resolved]
  - Wound secretion [Not Recovered/Not Resolved]
  - Impaired healing [Not Recovered/Not Resolved]

NARRATIVE: CASE EVENT DATE: 2017
